FAERS Safety Report 6890480-4 (Version None)
Quarter: 2010Q3

REPORT INFORMATION
  Report Type: 
  Country: None (occurrence: None)
  Receive Date: 20100731
  Receipt Date: 20081104
  Transmission Date: 20110219
  Serious: No
  Sender: FDA-Public Use
  Company Number: US-PFIZER INC-2008093767

PATIENT
  Sex: Male

DRUGS (3)
  1. LIPITOR [Suspect]
     Dates: start: 20080101, end: 20081031
  2. COREG [Concomitant]
  3. PLAVIX [Concomitant]

REACTIONS (1)
  - DRY MOUTH [None]
